FAERS Safety Report 12369464 (Version 1)
Quarter: 2016Q2

REPORT INFORMATION
  Report Type: Spontaneous
  Country: US (occurrence: None)
  Receive Date: 20160513
  Receipt Date: 20160513
  Transmission Date: 20160815
  Serious: Yes (Disabling)
  Sender: FDA-Public Use
  Company Number: None

PATIENT
  Age: 24 Year
  Sex: Female
  Weight: 58.97 kg

DRUGS (10)
  1. LEVOFLOXACIN. [Suspect]
     Active Substance: LEVOFLOXACIN
     Indication: SINUSITIS
     Dates: start: 20160209, end: 20160211
  2. VITAMIN B12 [Concomitant]
     Active Substance: CYANOCOBALAMIN
  3. MULTIVITAMIN [Concomitant]
     Active Substance: VITAMINS
  4. SELENIUM [Concomitant]
     Active Substance: SELENIUM
  5. MILK THISTLE [Concomitant]
     Active Substance: MILK THISTLE
  6. OMEGA 3 FISH OIL [Concomitant]
     Active Substance: FISH OIL\OMEGA-3 FATTY ACIDS
  7. ASTAXANTHIN [Concomitant]
  8. VITAMIN B1 [Concomitant]
     Active Substance: THIAMINE HYDROCHLORIDE
  9. CLINDAMYCIN PHOSPHATE/BENZOYL PEROXIDE GEL [Concomitant]
  10. SUNFLOWER LECITHIN [Concomitant]

REACTIONS (9)
  - Insomnia [None]
  - Visual impairment [None]
  - Tinnitus [None]
  - Arthralgia [None]
  - Gastrointestinal disorder [None]
  - Joint crepitation [None]
  - Tendon discomfort [None]
  - Pyrexia [None]
  - Neuropathy peripheral [None]

NARRATIVE: CASE EVENT DATE: 20160211
